FAERS Safety Report 7440601-X (Version None)
Quarter: 2011Q2

REPORT INFORMATION
  Report Type: 
  Country: None (occurrence: None)
  Receive Date: 20110427
  Receipt Date: 20110420
  Transmission Date: 20111010
  Serious: Yes (Hospitalization)
  Sender: FDA-Public Use
  Company Number: B0713441A

PATIENT
  Sex: Female
  Weight: 101.9 kg

DRUGS (8)
  1. ROSIGLITAZONE MALEATE [Suspect]
     Route: 048
  2. TOPROL-XL [Concomitant]
  3. AMARYL [Concomitant]
  4. PAXIL [Concomitant]
  5. MAALOX [Concomitant]
  6. CATAPRES [Concomitant]
  7. SULAR [Concomitant]
  8. GLUCOPHAGE [Concomitant]

REACTIONS (4)
  - MYOCARDIAL INFARCTION [None]
  - FLUID RETENTION [None]
  - ARTERIOSCLEROSIS [None]
  - HYPERTENSION [None]
